FAERS Safety Report 10408907 (Version 1)
Quarter: 2014Q3

REPORT INFORMATION
  Report Type: Spontaneous
  Country: GB (occurrence: None)
  Receive Date: 20140822
  Receipt Date: 20140822
  Transmission Date: 20150326
  Serious: Yes (Life-Threatening, Hospitalization, Other)
  Sender: FDA-Public Use
  Company Number: AUR-APL-2014-08782

PATIENT
  Age: 88 Year
  Sex: Male

DRUGS (13)
  1. ALLOPURINOL. [Concomitant]
     Active Substance: ALLOPURINOL
  2. BISOPROLOL [Concomitant]
     Active Substance: BISOPROLOL
  3. LANSOPRAZOLE. [Concomitant]
     Active Substance: LANSOPRAZOLE
  4. SALBUTAMOL [Concomitant]
     Active Substance: ALBUTEROL
  5. CITALOPRAM 20MG (CITALOPRAM) UNKNOWN, 20MG [Suspect]
     Active Substance: CITALOPRAM HYDROBROMIDE
     Indication: DEPRESSION
     Route: 048
     Dates: start: 20140414, end: 20140731
  6. XARELTO [Suspect]
     Active Substance: RIVAROXABAN
     Indication: PULMONARY EMBOLISM
     Route: 048
     Dates: start: 20131209, end: 20140731
  7. FUROSEMIDE. [Concomitant]
     Active Substance: FUROSEMIDE
  8. SIMVASTATIN. [Concomitant]
     Active Substance: SIMVASTATIN
  9. NICORANDIL [Concomitant]
     Active Substance: NICORANDIL
  10. ISOSORBIDE MONONITRATE. [Concomitant]
     Active Substance: ISOSORBIDE MONONITRATE
  11. TIOTROPIUM [Concomitant]
     Active Substance: TIOTROPIUM
  12. GLYCERYL TRINITRATE [Concomitant]
     Active Substance: NITROGLYCERIN
  13. SPIRONOLACTONE. [Concomitant]
     Active Substance: SPIRONOLACTONE

REACTIONS (2)
  - Duodenal ulcer haemorrhage [None]
  - Gastrointestinal haemorrhage [None]

NARRATIVE: CASE EVENT DATE: 20140731
